FAERS Safety Report 6173836-7 (Version None)
Quarter: 2009Q2

REPORT INFORMATION
  Report Type: 
  Country: None (occurrence: None)
  Receive Date: 20090430
  Receipt Date: 20090423
  Transmission Date: 20091009
  Serious: Yes (Hospitalization, Other)
  Sender: FDA-Public Use
  Company Number: US-ASTRAZENECA-2007UW09616

PATIENT
  Age: 41 Year
  Sex: Female
  Weight: 77.1 kg

DRUGS (3)
  1. SEROQUEL [Suspect]
     Indication: DEPRESSION
     Route: 048
     Dates: start: 20031201, end: 20050901
  2. SEROQUEL [Suspect]
     Route: 048
     Dates: start: 20040418, end: 20040517
  3. WELLBUTRIN [Concomitant]
     Dates: start: 20030101

REACTIONS (6)
  - BLOOD TRIGLYCERIDES INCREASED [None]
  - CARDIAC DISORDER [None]
  - FEELING ABNORMAL [None]
  - PANCREATITIS ACUTE [None]
  - ROAD TRAFFIC ACCIDENT [None]
  - TYPE 2 DIABETES MELLITUS [None]
